FAERS Safety Report 7756959-8 (Version None)
Quarter: 2011Q3

REPORT INFORMATION
  Report Type: 
  Country: None (occurrence: None)
  Receive Date: 20110916
  Receipt Date: 20110909
  Transmission Date: 20111222
  Serious: Yes (Death)
  Sender: FDA-Public Use
  Company Number: SE-GLAXOSMITHKLINE-B0747771A

PATIENT
  Sex: Female

DRUGS (2)
  1. ARZERRA [Suspect]
     Indication: LYMPHOMA
     Route: 065
  2. BENDAMUSTINE [Suspect]
     Indication: LYMPHOMA
     Route: 065

REACTIONS (2)
  - NEUROPATHY PERIPHERAL [None]
  - LYMPHOMA [None]
